FAERS Safety Report 8886102 (Version 1)
Quarter: 2012Q4

REPORT INFORMATION
  Report Type: 
  Country: US (occurrence: US)
  Receive Date: 20121105
  Receipt Date: 20121105
  Transmission Date: 20130627
  Serious: No
  Sender: FDA-Public Use
  Company Number: US-JNJFOC-20120912419

PATIENT
  Sex: Female
  Weight: 97.07 kg

DRUGS (1)
  1. INVEGA SUSTENNA [Suspect]
     Indication: SCHIZOPHRENIA
     Route: 030
     Dates: start: 20120208, end: 20120830

REACTIONS (2)
  - Weight increased [Not Recovered/Not Resolved]
  - Galactorrhoea [Unknown]
